FAERS Safety Report 4492659-8 (Version None)
Quarter: 2004Q4

REPORT INFORMATION
  Report Type: 
  Country: None (occurrence: None)
  Receive Date: 20041102
  Receipt Date: 20041102
  Transmission Date: 20050328
  Serious: Yes (Hospitalization)
  Sender: FDA-Public Use
  Company Number: None

PATIENT
  Sex: Female
  Weight: 63.05 kg

DRUGS (6)
  1. REMODULIN [Suspect]
     Indication: PULMONARY HYPERTENSION
     Dosage: 98 NG/KG/KG/MIN
     Dates: start: 20031027
  2. LANOXIN [Concomitant]
  3. K-DUR 10 [Concomitant]
  4. LASIX [Concomitant]
  5. ISOSORBIDE [Concomitant]
  6. SOTOLOL [Concomitant]

REACTIONS (2)
  - ATRIAL FLUTTER [None]
  - THROMBOSIS [None]
